FAERS Safety Report 10016556 (Version 1)
Quarter: 2014Q1

REPORT INFORMATION
  Report Type: Report from Study
  Country: MX (occurrence: MX)
  Receive Date: 20140317
  Receipt Date: 20140317
  Transmission Date: 20141002
  Serious: Yes (Other)
  Sender: FDA-Public Use
  Company Number: PHHY2014MX032203

PATIENT
  Age: 44 Year
  Sex: Female
  Weight: 85 kg

DRUGS (4)
  1. TRILEPTAL [Suspect]
     Indication: EPILEPSY
     Dosage: 3 DF, DAILY
     Dates: start: 201401
  2. RIVOTRIL [Concomitant]
     Indication: EPILEPSY
     Dosage: 2 DF, DAILY
     Dates: start: 1994
  3. EPIVAL R [Concomitant]
     Indication: EPILEPSY
     Dosage: 3 DF, DAILY
     Dates: start: 201301
  4. PHENYTOIN [Concomitant]
     Indication: EPILEPSY
     Dosage: 2 DF, DAILY
     Dates: start: 1975

REACTIONS (3)
  - Daydreaming [Not Recovered/Not Resolved]
  - Convulsion [Not Recovered/Not Resolved]
  - Drug ineffective [Not Recovered/Not Resolved]
